FAERS Safety Report 5638805-1 (Version None)
Quarter: 2008Q1

REPORT INFORMATION
  Report Type: 
  Country: None (occurrence: None)
  Receive Date: 20080226
  Receipt Date: 20080215
  Transmission Date: 20080703
  Serious: Yes (Other)
  Sender: FDA-Public Use
  Company Number: US-ASTRAZENECA-2007UW00344

PATIENT
  Age: 37 Year
  Sex: Female
  Weight: 113.6 kg

DRUGS (16)
  1. SEROQUEL [Suspect]
     Indication: MAJOR DEPRESSION
     Route: 048
     Dates: start: 20010101, end: 20020101
  2. SEROQUEL [Suspect]
     Route: 048
     Dates: start: 20010101, end: 20020101
  3. SEROQUEL [Suspect]
     Route: 048
     Dates: start: 20010101
  4. SEROQUEL [Suspect]
     Route: 048
     Dates: start: 20040101
  5. SEROQUEL [Suspect]
     Route: 048
     Dates: start: 20050101
  6. SEROQUEL [Suspect]
     Route: 048
     Dates: start: 20020219, end: 20030216
  7. ZYPREXA [Suspect]
     Indication: MAJOR DEPRESSION
     Route: 048
     Dates: start: 20010101
  8. ZYPREXA [Suspect]
     Route: 048
     Dates: start: 20040101, end: 20050101
  9. ZYPREXA [Suspect]
     Dates: start: 20020128, end: 20020826
  10. RISPERDAL [Suspect]
     Indication: MAJOR DEPRESSION
     Dates: start: 20011220, end: 20010101
  11. ABILIFY [Concomitant]
     Dates: start: 20060101
  12. GEODON [Concomitant]
  13. NAVANE [Concomitant]
     Dates: start: 20060101, end: 20060101
  14. THORAZINE [Concomitant]
     Route: 048
  15. CYMBALTA [Concomitant]
     Route: 048
  16. TRILEPTAL [Concomitant]
     Route: 048

REACTIONS (7)
  - BLOOD TRIGLYCERIDES INCREASED [None]
  - HYPERGLYCAEMIA [None]
  - HYPERLIPIDAEMIA [None]
  - OBESITY [None]
  - SUICIDE ATTEMPT [None]
  - TYPE 2 DIABETES MELLITUS [None]
  - WEIGHT INCREASED [None]
